FAERS Safety Report 9916914 (Version 2)
Quarter: 2014Q1

REPORT INFORMATION
  Report Type: Report from Study
  Country: CA (occurrence: CA)
  Receive Date: 20140221
  Receipt Date: 20140221
  Transmission Date: 20141002
  Serious: Yes (Hospitalization)
  Sender: FDA-Public Use
  Company Number: CA-UCBSA-110480

PATIENT
  Age: 34 Year
  Sex: Female
  Weight: 77 kg

DRUGS (8)
  1. CIMZIA [Suspect]
     Indication: RHEUMATOID ARTHRITIS
     Dosage: 200 MG EVERY 2 WEEKS
     Route: 058
     Dates: start: 20131015
  2. CIMZIA [Suspect]
     Indication: RHEUMATOID ARTHRITIS
     Dosage: 400 MG EVERY 2 WEEKS X 3
     Route: 058
     Dates: start: 20130904, end: 20131001
  3. FOLIC ACID [Concomitant]
     Indication: RHEUMATOID ARTHRITIS
     Route: 048
     Dates: start: 201304
  4. VALSARTAN [Concomitant]
     Indication: HYPERTENSION
     Route: 048
     Dates: start: 2007
  5. METHOTREXATE [Concomitant]
     Indication: RHEUMATOID ARTHRITIS
     Route: 058
     Dates: start: 201304
  6. PLAQUENIL [Concomitant]
     Indication: RHEUMATOID ARTHRITIS
     Route: 048
     Dates: start: 201304
  7. PANTOLOC [Concomitant]
     Indication: PROPHYLAXIS
     Route: 048
     Dates: start: 201304
  8. CALCIUM-VIT D [Concomitant]
     Indication: MINERAL SUPPLEMENTATION
     Dosage: 500-400 MG/UI
     Route: 048

REACTIONS (2)
  - Sinusitis [Recovered/Resolved]
  - Dehydration [Recovered/Resolved]
